FAERS Safety Report 5412673-5 (Version None)
Quarter: 2007Q3

REPORT INFORMATION
  Report Type: 
  Country: None (occurrence: None)
  Receive Date: 20070813
  Receipt Date: 20070713
  Transmission Date: 20080115
  Serious: Yes (Hospitalization)
  Sender: FDA-Public Use
  Company Number: CH-BRISTOL-MYERS SQUIBB COMPANY-13874334

PATIENT
  Age: 31 Year
  Sex: Female

DRUGS (3)
  1. EFAVIRENZ [Suspect]
     Indication: HIV INFECTION
     Route: 048
     Dates: end: 20070602
  2. VIREAD [Suspect]
     Indication: HIV INFECTION
     Route: 048
     Dates: end: 20070602
  3. 3TC [Concomitant]
     Dates: end: 20070602

REACTIONS (2)
  - BLOOD CREATININE INCREASED [None]
  - NEPHROTIC SYNDROME [None]
